FAERS Safety Report 23668189 (Version 1)
Quarter: 2024Q1

REPORT INFORMATION
  Report Type: Spontaneous
  Country: US (occurrence: None)
  Receive Date: 20240322
  Receipt Date: 20240322
  Transmission Date: 20240409
  Serious: Yes (Disabling, Other)
  Sender: FDA-Public Use
  Company Number: None

PATIENT
  Age: 74 Year
  Sex: Male
  Weight: 73.35 kg

DRUGS (1)
  1. MYRBETRIQ [Suspect]
     Active Substance: MIRABEGRON
     Indication: Urethral stenosis
     Dosage: FREQUENCY : DAILY;?
     Route: 048
     Dates: start: 20230425, end: 20240220

REACTIONS (3)
  - Tendonitis [None]
  - Trigger finger [None]
  - Hypertension [None]

NARRATIVE: CASE EVENT DATE: 20240201
